FAERS Safety Report 9845207 (Version 2)
Quarter: 2014Q1

REPORT INFORMATION
  Report Type: Spontaneous
  Country: CA (occurrence: None)
  Receive Date: 20140122
  Receipt Date: 20140218
  Transmission Date: 20141002
  Serious: Yes (Hospitalization)
  Sender: FDA-Public Use
  Company Number: 2014SGN00004

PATIENT
  Sex: Female

DRUGS (1)
  1. ADCETRIS [Suspect]
     Indication: HODGKIN^S DISEASE
     Dosage: 120 MG/KG, Q21D
     Dates: start: 20131219

REACTIONS (9)
  - Throat irritation [None]
  - Flushing [None]
  - Palpitations [None]
  - Malaise [None]
  - Rash [None]
  - Palpitations [None]
  - Malaise [None]
  - Infusion related reaction [None]
  - Throat irritation [None]
